FAERS Safety Report 6577286-0 (Version None)
Quarter: 2010Q1

REPORT INFORMATION
  Report Type: 
  Country: None (occurrence: None)
  Receive Date: 20100210
  Receipt Date: 20091124
  Transmission Date: 20100710
  Serious: Yes (Other)
  Sender: FDA-Public Use
  Company Number: DE-GENENTECH-297604

PATIENT
  Age: 5 Year
  Sex: Male
  Weight: 21 kg

DRUGS (2)
  1. XOLAIR [Suspect]
     Indication: ASTHMA
     Dosage: 150 MG, 1/MONTH
     Dates: start: 20080408
  2. XOLAIR [Suspect]

REACTIONS (1)
  - ASTHMA [None]
